FAERS Safety Report 7407559-0 (Version None)
Quarter: 2011Q2

REPORT INFORMATION
  Report Type: 
  Country: None (occurrence: None)
  Receive Date: 20110406
  Receipt Date: 20110406
  Transmission Date: 20111010
  Serious: Yes (Hospitalization)
  Sender: FDA-Public Use
  Company Number: None

PATIENT
  Sex: Female
  Weight: 116.4 kg

DRUGS (2)
  1. CARBOPLATIN [Suspect]
     Dosage: 890 MG
  2. TAXOL [Suspect]
     Dosage: 371 MG

REACTIONS (3)
  - HEPARIN-INDUCED THROMBOCYTOPENIA [None]
  - THROMBOCYTOPENIA [None]
  - DEEP VEIN THROMBOSIS [None]
